FAERS Safety Report 5338530-0 (Version None)
Quarter: 2007Q2

REPORT INFORMATION
  Report Type: 
  Country: None (occurrence: None)
  Receive Date: 20070322
  Receipt Date: 20060125
  Transmission Date: 20071010
  Serious: Yes (Hospitalization, Other)
  Sender: FDA-Public Use
  Company Number: 200515170BCC

PATIENT
  Age: 68 Year
  Sex: Female
  Weight: 74.8435 kg

DRUGS (7)
  1. ALEVE [Suspect]
     Indication: ARTHRITIS
     Dosage: 440 MG, BID, ORAL
     Route: 048
     Dates: start: 20040101
  2. ALEVE [Suspect]
     Indication: FIBROCYSTIC BREAST DISEASE
     Dosage: 440 MG, BID, ORAL
     Route: 048
     Dates: start: 20040101
  3. ALEVE [Suspect]
     Indication: PAIN
     Dosage: 440 MG, BID, ORAL
     Route: 048
     Dates: start: 20040101
  4. LOTREL [Concomitant]
  5. ATIVAN [Concomitant]
  6. TYLENOL [Concomitant]
  7. ACIPHEX [Concomitant]

REACTIONS (4)
  - ABDOMINAL PAIN UPPER [None]
  - DIVERTICULUM [None]
  - RECTAL HAEMORRHAGE [None]
  - ULCER [None]
